FAERS Safety Report 17147796 (Version 1)
Quarter: 2019Q4

REPORT INFORMATION
  Report Type: Spontaneous
  Country: ES (occurrence: ES)
  Receive Date: 20191212
  Receipt Date: 20191212
  Transmission Date: 20200122
  Serious: Yes (Death, Hospitalization)
  Sender: FDA-Public Use
  Company Number: NVSC2019ES060776

PATIENT
  Age: 81 Year
  Sex: Male

DRUGS (4)
  1. CYCLOSPORINE. [Suspect]
     Active Substance: CYCLOSPORINE
     Dosage: 100 MG, BID
     Route: 048
     Dates: end: 20130910
  2. CYCLOSPORINE. [Suspect]
     Active Substance: CYCLOSPORINE
     Dosage: 100 MG, BID
     Route: 048
     Dates: end: 20140407
  3. CYCLOSPORINE. [Suspect]
     Active Substance: CYCLOSPORINE
     Indication: PRODUCT USED FOR UNKNOWN INDICATION
     Dosage: 100 MG, BID
     Route: 048
     Dates: start: 20120530, end: 20130517
  4. CYCLOSPORINE. [Suspect]
     Active Substance: CYCLOSPORINE
     Dosage: 170 MG, QD
     Route: 048
     Dates: end: 20131020

REACTIONS (11)
  - Renal failure [Unknown]
  - Pneumonia [Recovered/Resolved]
  - Blood creatine increased [Recovering/Resolving]
  - Haematuria [Recovering/Resolving]
  - Ischaemia [Unknown]
  - Respiratory tract infection [Recovered/Resolved]
  - Pancreatitis acute [Recovered/Resolved]
  - Anaemia [Unknown]
  - Cholecystitis acute [Fatal]
  - Thrombocytopenia [Unknown]
  - Renal impairment [Unknown]

NARRATIVE: CASE EVENT DATE: 20130518
